FAERS Safety Report 5341480-7 (Version None)
Quarter: 2007Q2

REPORT INFORMATION
  Report Type: 
  Country: None (occurrence: None)
  Receive Date: 20070601
  Receipt Date: 20070524
  Transmission Date: 20071010
  Serious: Yes (Hospitalization, Other)
  Sender: FDA-Public Use
  Company Number: PHBS2007NL08685

PATIENT
  Age: 19 Year
  Sex: Male

DRUGS (2)
  1. BROMOCRIPTINE MESYLATE [Suspect]
     Indication: PARKINSONISM
  2. LEVODOPA [Concomitant]

REACTIONS (3)
  - AGGRESSION [None]
  - DYSKINESIA [None]
  - HALLUCINATION, VISUAL [None]
